FAERS Safety Report 5747525-4 (Version None)
Quarter: 2008Q2

REPORT INFORMATION
  Report Type: 
  Country: None (occurrence: None)
  Receive Date: 20080523
  Receipt Date: 20080516
  Transmission Date: 20081010
  Serious: Yes (Hospitalization)
  Sender: FDA-Public Use
  Company Number: HQWYE811924APR07

PATIENT
  Age: 33 Year
  Sex: Female

DRUGS (1)
  1. OROKEN [Suspect]
     Dosage: UNKNOWN
     Route: 048
     Dates: start: 20070319, end: 20070319

REACTIONS (2)
  - ANGIOEDEMA [None]
  - DRUG HYPERSENSITIVITY [None]
